FAERS Safety Report 19511002 (Version 3)
Quarter: 2022Q1

REPORT INFORMATION
  Report Type: Report from Study
  Country: US (occurrence: US)
  Receive Date: 20210709
  Receipt Date: 20220128
  Transmission Date: 20220423
  Serious: Yes (Disabling)
  Sender: FDA-Public Use
  Company Number: US-ABBVIE-21K-163-3982411-00

PATIENT
  Sex: Female

DRUGS (8)
  1. HUMIRA [Suspect]
     Active Substance: ADALIMUMAB
     Indication: Colitis ulcerative
     Dosage: DAY 1
     Route: 058
     Dates: start: 20210630, end: 20210630
  2. HUMIRA [Suspect]
     Active Substance: ADALIMUMAB
     Indication: Colitis ulcerative
     Dosage: DAY 1
     Route: 058
     Dates: start: 20210728
  3. HUMIRA [Suspect]
     Active Substance: ADALIMUMAB
     Dosage: DAY 15
     Route: 058
     Dates: start: 20210728
  4. HUMIRA [Suspect]
     Active Substance: ADALIMUMAB
     Route: 058
     Dates: start: 20210728
  5. HUMIRA [Suspect]
     Active Substance: ADALIMUMAB
     Route: 058
     Dates: start: 20210630
  6. MERCAPTOPURINE [Suspect]
     Active Substance: MERCAPTOPURINE
     Indication: Colitis ulcerative
     Route: 048
  7. PREDNISONE [Concomitant]
     Active Substance: PREDNISONE
     Indication: Colitis ulcerative
  8. BENTYL [Concomitant]
     Active Substance: DICYCLOMINE HYDROCHLORIDE
     Indication: Colitis ulcerative

REACTIONS (37)
  - Disability [Unknown]
  - Feeling hot [Unknown]
  - Frequent bowel movements [Recovering/Resolving]
  - Fatigue [Recovering/Resolving]
  - Decreased appetite [Recovering/Resolving]
  - Loss of personal independence in daily activities [Recovering/Resolving]
  - Erythema of eyelid [Unknown]
  - Asthenia [Recovering/Resolving]
  - Bruxism [Unknown]
  - Fatigue [Unknown]
  - Balance disorder [Unknown]
  - Mucous stools [Unknown]
  - Constipation [Unknown]
  - Chills [Unknown]
  - Swelling of eyelid [Unknown]
  - Malaise [Recovering/Resolving]
  - Defaecation urgency [Recovering/Resolving]
  - Migraine [Unknown]
  - Anxiety [Recovering/Resolving]
  - Swelling face [Unknown]
  - Neuropathy peripheral [Unknown]
  - Hyperhidrosis [Unknown]
  - Insomnia [Recovering/Resolving]
  - Flatulence [Unknown]
  - Depression [Unknown]
  - Abdominal distension [Recovering/Resolving]
  - Injection site warmth [Unknown]
  - Dysgeusia [Unknown]
  - Haematochezia [Unknown]
  - Injection site erythema [Unknown]
  - Muscle spasms [Unknown]
  - Abdominal pain [Recovering/Resolving]
  - Diarrhoea [Recovering/Resolving]
  - Nausea [Recovering/Resolving]
  - Injection site swelling [Unknown]
  - Alopecia [Unknown]
  - Arthralgia [Recovering/Resolving]

NARRATIVE: CASE EVENT DATE: 20210101
